FAERS Safety Report 24856364 (Version 1)
Quarter: 2025Q1

REPORT INFORMATION
  Report Type: Spontaneous
  Country: ES (occurrence: ES)
  Receive Date: 20250117
  Receipt Date: 20250117
  Transmission Date: 20250408
  Serious: Yes (Hospitalization)
  Sender: PFIZER
  Company Number: ES-PFIZER INC-PV202500005434

PATIENT
  Age: 64 Year
  Sex: Female

DRUGS (9)
  1. GEMFIBROZIL [Interacting]
     Active Substance: GEMFIBROZIL
     Indication: Hypertriglyceridaemia
     Dosage: 600 MG, DAILY
  2. CERIVASTATIN [Interacting]
     Active Substance: CERIVASTATIN
     Indication: Hypertriglyceridaemia
     Dosage: 0.2 MG, DAILY
  3. CERIVASTATIN [Interacting]
     Active Substance: CERIVASTATIN
     Dosage: 0.4 MG, DAILY
  4. DILTIAZEM [Concomitant]
     Active Substance: DILTIAZEM
     Dosage: 240 MG, DAILY
  5. TRIFLUSAL [Concomitant]
     Active Substance: TRIFLUSAL
     Dosage: 300 MG, DAILY
  6. GLYBURIDE [Concomitant]
     Active Substance: GLYBURIDE
     Dosage: 10 MG, DAILY
  7. ISOSORBIDE MONONITRATE [Concomitant]
     Active Substance: ISOSORBIDE MONONITRATE
     Dosage: 60 MG, DAILY
  8. NITROGLYCERIN [Concomitant]
     Active Substance: NITROGLYCERIN
     Dosage: 15 MG, DAILY
     Route: 062
  9. METFORMIN [Concomitant]
     Active Substance: METFORMIN HYDROCHLORIDE
     Dosage: 1700 MG, DAILY

REACTIONS (2)
  - Drug interaction [Unknown]
  - Rhabdomyolysis [Recovering/Resolving]
